FAERS Safety Report 4609088-6 (Version None)
Quarter: 2005Q2

REPORT INFORMATION
  Report Type: 
  Country: None (occurrence: None)
  Receive Date: 20050228
  Receipt Date: 20041216
  Transmission Date: 20051028
  Serious: Yes (Hospitalization)
  Sender: FDA-Public Use
  Company Number: US-JNJFOC-20041001512

PATIENT
  Age: 34 Year
  Sex: Male

DRUGS (4)
  1. RISPERDAL [Suspect]
     Indication: SCHIZOPHRENIA, PARANOID TYPE
     Dosage: 37.5 MG, 1 IN 2 WEEK, INTRAMUSCULAR
     Route: 030
     Dates: start: 20040701
  2. RISPERDAL [Suspect]
     Indication: SCHIZOPHRENIA, PARANOID TYPE
     Dosage: 8 MG, 1 IN 1 DAY
     Dates: start: 20040701, end: 20040801
  3. GEODON (TABLETS) ZIPRASIDONE HYDROCHLORIDE [Concomitant]
  4. XANAX [Concomitant]

REACTIONS (1)
  - SCHIZOPHRENIA [None]
